FAERS Safety Report 12755384 (Version 2)
Quarter: 2017Q1

REPORT INFORMATION
  Report Type: Report from Study
  Country: US (occurrence: US)
  Receive Date: 20160916
  Receipt Date: 20170316
  Transmission Date: 20170428
  Serious: Yes (Death)
  Sender: FDA-Public Use
  Company Number: US-PFIZER INC-2016433201

PATIENT
  Age: 59 Year
  Sex: Male

DRUGS (1)
  1. ARGATROBAN. [Suspect]
     Active Substance: ARGATROBAN
     Indication: THROMBOCYTOPENIA
     Dosage: UNK

REACTIONS (1)
  - Subarachnoid haemorrhage [Fatal]
